FAERS Safety Report 13248040 (Version 4)
Quarter: 2017Q2

REPORT INFORMATION
  Report Type: Spontaneous
  Country: JP (occurrence: JP)
  Receive Date: 20170217
  Receipt Date: 20170501
  Transmission Date: 20170830
  Serious: Yes (Disabling)
  Sender: FDA-Public Use
  Company Number: JP-LUNDBECK-DKLU2026692

PATIENT
  Age: 55 Year
  Sex: Male

DRUGS (7)
  1. CARCOPA [Concomitant]
     Active Substance: CARBIDOPA\LEVODOPA
     Indication: MULTIPLE SYSTEM ATROPHY
     Route: 048
  2. DOPS [Suspect]
     Active Substance: DROXIDOPA
     Route: 048
     Dates: start: 20141111, end: 20141118
  3. DOPS [Suspect]
     Active Substance: DROXIDOPA
     Indication: ORTHOSTATIC HYPOTENSION
     Route: 048
     Dates: start: 20140118, end: 20141110
  4. FLORINEF ACETATE [Suspect]
     Active Substance: FLUDROCORTISONE ACETATE
     Indication: ORTHOSTATIC HYPOTENSION
     Route: 048
     Dates: start: 20140128
  5. URIEF [Concomitant]
     Active Substance: SILODOSIN
     Indication: NEUROGENIC BLADDER
     Route: 048
  6. MIRAPEX-LA [Concomitant]
     Indication: MULTIPLE SYSTEM ATROPHY
     Route: 048
  7. UBRETID [Concomitant]
     Active Substance: DISTIGMINE BROMIDE
     Indication: NEUROGENIC BLADDER
     Route: 048

REACTIONS (1)
  - Cerebral haemorrhage [Recovered/Resolved with Sequelae]

NARRATIVE: CASE EVENT DATE: 20141118
